FAERS Safety Report 9937001 (Version 1)
Quarter: 2014Q1

REPORT INFORMATION
  Report Type: Spontaneous
  Country: US (occurrence: None)
  Receive Date: 20140122
  Receipt Date: 20140122
  Transmission Date: 20141002
  Serious: No
  Sender: FDA-Public Use
  Company Number: AP356-00187-SPO-US

PATIENT
  Age: 76 Year
  Sex: Female
  Weight: 97 kg

DRUGS (4)
  1. BELVIQ (LORCASERIN HYDROCHLORIDE) [Suspect]
     Indication: WEIGHT CONTROL
     Route: 048
     Dates: start: 201310, end: 20131023
  2. DOXYCYCLINE (DOXYCYCLINE) [Concomitant]
  3. METFORMIN (METFORMIN) [Concomitant]
  4. BYSTOLIC (NEBIVOLOL HYDROCHLORIDE) [Concomitant]

REACTIONS (1)
  - Weight increased [None]
